FAERS Safety Report 21578945 (Version 2)
Quarter: 2024Q2

REPORT INFORMATION
  Report Type: Spontaneous
  Country: US (occurrence: US)
  Receive Date: 20221110
  Receipt Date: 20240516
  Transmission Date: 20240716
  Serious: No
  Sender: FDA-Public Use
  Company Number: US-SA-SAC20221104000906

PATIENT
  Sex: Female

DRUGS (1)
  1. DUPIXENT [Suspect]
     Active Substance: DUPILUMAB
     Indication: Dermatitis atopic
     Dosage: 300 MG, QOW
     Route: 058
     Dates: start: 202207

REACTIONS (7)
  - Dry skin [Unknown]
  - Visual impairment [Unknown]
  - Psoriasis [Unknown]
  - Blood glucose increased [Unknown]
  - Alopecia [Unknown]
  - Pruritus [Unknown]
  - Dermatitis atopic [Unknown]
